FAERS Safety Report 9867322 (Version 1)
Quarter: 2014Q1

REPORT INFORMATION
  Report Type: Spontaneous
  Country: FR (occurrence: FR)
  Receive Date: 20140204
  Receipt Date: 20140204
  Transmission Date: 20141002
  Serious: Yes (Other)
  Sender: FDA-Public Use
  Company Number: FR-JNJFOC-20140118619

PATIENT
  Age: 43 Year
  Sex: Female

DRUGS (1)
  1. REMICADE [Suspect]
     Indication: CROHN^S DISEASE
     Dosage: ONCE DAILY
     Route: 042
     Dates: start: 20120105

REACTIONS (7)
  - Hot flush [Recovering/Resolving]
  - Oxygen saturation decreased [Recovering/Resolving]
  - Hyperhidrosis [Recovering/Resolving]
  - Infusion related reaction [Recovering/Resolving]
  - Cyanosis [Recovering/Resolving]
  - Face oedema [Recovering/Resolving]
  - Laryngeal discomfort [Recovering/Resolving]
